FAERS Safety Report 9965478 (Version 1)
Quarter: 2014Q1

REPORT INFORMATION
  Report Type: Spontaneous
  Country: MX (occurrence: MX)
  Receive Date: 20140305
  Receipt Date: 20140305
  Transmission Date: 20141002
  Serious: Yes (Hospitalization)
  Sender: FDA-Public Use
  Company Number: MX-ELI_LILLY_AND_COMPANY-MX201402008076

PATIENT
  Age: 11 Year
  Sex: Male

DRUGS (4)
  1. HUMALOG LISPRO [Suspect]
     Indication: TYPE 1 DIABETES MELLITUS
     Route: 065
  2. HUMULIN R [Suspect]
     Indication: PRODUCT USED FOR UNKNOWN INDICATION
     Route: 065
  3. LANTUS [Concomitant]
  4. INSULIN GLARGINE [Concomitant]

REACTIONS (3)
  - Blood glucose increased [Unknown]
  - Rash [Unknown]
  - Wrong technique in drug usage process [Unknown]
